FAERS Safety Report 9561253 (Version 1)
Quarter: 2013Q3

REPORT INFORMATION
  Report Type: Spontaneous
  Country: US (occurrence: US)
  Receive Date: 20130927
  Receipt Date: 20130927
  Transmission Date: 20140515
  Serious: No
  Sender: FDA-Public Use
  Company Number: US-BIOGENIDEC-2013BI057691

PATIENT
  Age: 37 Year
  Sex: Female

DRUGS (5)
  1. TECFIDERA [Suspect]
     Indication: MULTIPLE SCLEROSIS
     Dates: start: 20130523, end: 20130606
  2. TECFIDERA [Suspect]
     Indication: MULTIPLE SCLEROSIS
  3. VITAMIN D [Concomitant]
  4. VITAMIN B COMPLEX [Concomitant]
  5. ADVIL [Concomitant]

REACTIONS (10)
  - Diarrhoea [Unknown]
  - Nausea [Unknown]
  - Vomiting [Unknown]
  - Headache [Unknown]
  - Back pain [Recovered/Resolved]
  - Abdominal pain upper [Recovered/Resolved]
  - Flushing [Unknown]
  - Rash [Recovered/Resolved]
  - Abdominal distension [Unknown]
  - Muscle spasms [Unknown]
